FAERS Safety Report 18198775 (Version 2)
Quarter: 2020Q4

REPORT INFORMATION
  Report Type: Spontaneous
  Country: US (occurrence: US)
  Receive Date: 20200826
  Receipt Date: 20201119
  Transmission Date: 20210113
  Serious: No
  Sender: FDA-Public Use
  Company Number: US-LEXICON PHARMACEUTICALS, INC-20-1606-00674

PATIENT
  Age: 63 Year
  Sex: Female

DRUGS (3)
  1. IBUPROFEN. [Suspect]
     Active Substance: IBUPROFEN
  2. XERMELO [Suspect]
     Active Substance: TELOTRISTAT ETHYL
     Indication: CARCINOID SYNDROME
     Dates: start: 20170518, end: 20201112
  3. XERMELO [Suspect]
     Active Substance: TELOTRISTAT ETHYL
     Dosage: MY LIVER SPECIALIST SAID IT IS OK TO MISS A DOSE TO BALANCE THINGS OUT.
     Dates: start: 20201113

REACTIONS (4)
  - Drug interaction [Not Recovered/Not Resolved]
  - Tooth extraction [Not Recovered/Not Resolved]
  - Constipation [Unknown]
  - Constipation [Not Recovered/Not Resolved]

NARRATIVE: CASE EVENT DATE: 202011
